FAERS Safety Report 25721120 (Version 1)
Quarter: 2025Q3

REPORT INFORMATION
  Report Type: Spontaneous
  Country: TR (occurrence: TR)
  Receive Date: 20250825
  Receipt Date: 20250825
  Transmission Date: 20251021
  Serious: Yes (Hospitalization)
  Sender: MACLEODS
  Company Number: TR-MACLEODS PHARMA-MAC2025054673

PATIENT

DRUGS (1)
  1. DOXYCYCLINE [Suspect]
     Active Substance: DOXYCYCLINE
     Indication: Acne
     Dosage: DOXYCYCLINE 1X100 MG, BEFORE GOING TO BED
     Route: 048

REACTIONS (3)
  - Wrong technique in product usage process [Recovered/Resolved]
  - Oesophagitis [Recovered/Resolved]
  - Oesophageal ulcer [Recovered/Resolved]
